FAERS Safety Report 15935602 (Version 3)
Quarter: 2019Q1

REPORT INFORMATION
  Report Type: Spontaneous
  Country: IT (occurrence: IT)
  Receive Date: 20190208
  Receipt Date: 20190307
  Transmission Date: 20190417
  Serious: Yes (Life-Threatening, Hospitalization, Other)
  Sender: FDA-Public Use
  Company Number: IT-AUROBINDO-AUR-APL-2019-006434

PATIENT

DRUGS (1)
  1. ARIPIPRAZOLE TABLETS [Suspect]
     Active Substance: ARIPIPRAZOLE
     Indication: PRODUCT USED FOR UNKNOWN INDICATION
     Dosage: 70 MILLIGRAM IN TOTAL, 14 TABLETS
     Route: 065

REACTIONS (5)
  - Suicide attempt [Recovered/Resolved]
  - Atrioventricular block second degree [Recovered/Resolved]
  - Drug abuse [Recovered/Resolved]
  - Overdose [Unknown]
  - Intentional overdose [Recovered/Resolved]
